FAERS Safety Report 23982408 (Version 1)
Quarter: 2024Q2

REPORT INFORMATION
  Report Type: Spontaneous
  Country: NL (occurrence: NL)
  Receive Date: 20240617
  Receipt Date: 20240617
  Transmission Date: 20240716
  Serious: Yes (Life-Threatening)
  Sender: FDA-Public Use
  Company Number: None

PATIENT
  Age: 55 Year
  Sex: Female
  Weight: 96 kg

DRUGS (11)
  1. NAPROXEN [Suspect]
     Active Substance: NAPROXEN
     Indication: Pain
     Dosage: BRAND NAME NOT SPECIFIED 1 TABLET IN THE EVENING
     Route: 065
     Dates: start: 20240321, end: 20240415
  2. AMLODIPINE [Concomitant]
     Active Substance: AMLODIPINE BESYLATE
     Indication: Product used for unknown indication
     Dosage: BRAND NAME NOT SPECIFIED
     Route: 065
  3. OMEPRAZOLE [Concomitant]
     Active Substance: DONEPEZIL HYDROCHLORIDE\OMEPRAZOLE\OMEPRAZOLE MAGNESIUM
     Indication: Product used for unknown indication
     Dosage: CAPSULE MSR BRAND NAME NOT SPECIFIED
     Route: 065
  4. METFORMIN [Concomitant]
     Active Substance: METFORMIN HYDROCHLORIDE
     Indication: Product used for unknown indication
     Dosage: BRAND NAME NOT SPECIFIED
     Route: 065
  5. ATORVASTATIN [Concomitant]
     Active Substance: ATORVASTATIN
     Indication: Product used for unknown indication
     Dosage: BRAND NAME NOT SPECIFIED
     Route: 065
  6. ISOPHANE INSULIN [Concomitant]
     Active Substance: INSULIN NOS
     Indication: Product used for unknown indication
     Dosage: BRAND NAME NOT SPECIFIED 100 IU/ML (UNITS PER MILLILITER)
     Route: 065
  7. INSULIN ASPART [Concomitant]
     Active Substance: INSULIN ASPART
     Indication: Product used for unknown indication
     Dosage: BRAND NAME NOT SPECIFIED INJECTION FLUID, 100 UNITS/ML (UNITS PER MILLILITER)
     Route: 065
  8. TRELEGY ELLIPTA [Concomitant]
     Active Substance: FLUTICASONE FUROATE\UMECLIDINIUM BROMIDE\VILANTEROL TRIFENATATE
     Indication: Product used for unknown indication
     Dosage: FLUTICASON/UMECLIDINIU/VILANT INHPDR 92/55/22UG/DO ELLIPTA
     Route: 065
  9. MIRTAZAPINE [Concomitant]
     Active Substance: MIRTAZAPINE
     Indication: Product used for unknown indication
     Dosage: BRAND NAME NOT SPECIFIED
     Route: 065
  10. ETANERCEPT [Concomitant]
     Active Substance: ETANERCEPT
     Indication: Product used for unknown indication
     Dosage: DOSAGE: 50 MG/ML BRAND NAME NOT SPECIFIED INJECTION FLUID
     Route: 065
  11. ALBUTEROL [Concomitant]
     Active Substance: ALBUTEROL
     Indication: Product used for unknown indication
     Dosage: BRAND NAME NOT SPECIFIED AEROSOL, 100 ?G/DOSE (MICROGRAMS PER DOSE)
     Route: 065

REACTIONS (5)
  - Choking [Recovered/Resolved]
  - Product size issue [Recovered/Resolved]
  - Product complaint [Recovered/Resolved]
  - Foreign body in throat [Recovered/Resolved]
  - Product coating issue [Recovered/Resolved]
